FAERS Safety Report 9818846 (Version 3)
Quarter: 2014Q2

REPORT INFORMATION
  Report Type: Spontaneous
  Country: US (occurrence: US)
  Receive Date: 20140115
  Receipt Date: 20140417
  Transmission Date: 20141212
  Serious: No
  Sender: FDA-Public Use
  Company Number: US-PFIZER INC-2014010679

PATIENT
  Age: 65 Year
  Sex: Male

DRUGS (21)
  1. SUTENT [Suspect]
     Indication: RENAL CANCER
     Dosage: 50 MG, DAILY (4 WEEKS ON 2 WEEKS OFF)
     Route: 048
     Dates: start: 20120517
  2. SUTENT [Suspect]
     Dosage: 50 MG, CYCLIC (DAILY, 4 WEEKS ON 2 WEEKS OFF)
     Route: 048
     Dates: start: 20130214
  3. ACETAMINOPHEN [Concomitant]
     Dosage: UNK
  4. AMLODIPINE [Concomitant]
     Dosage: UNK
  5. ASPIRIN [Concomitant]
     Dosage: UNK
  6. SENSIPAR [Concomitant]
     Dosage: UNK
  7. CASODEX [Concomitant]
     Dosage: UNK
  8. HYDRALAZINE [Concomitant]
     Dosage: UNK
  9. HYDROCHLOROTHIAZID [Concomitant]
     Dosage: UNK
  10. MINOXIDIL [Concomitant]
     Dosage: UNK
  11. MATRADOL [Concomitant]
     Dosage: UNK
  12. TYLENOL [Concomitant]
     Dosage: UNK
  13. METOPROLOL [Concomitant]
     Dosage: UNK
  14. PANTOPRAZOLE [Concomitant]
     Dosage: UNK
  15. PROVASIN [Concomitant]
     Dosage: UNK
  16. RENAL CAPS [Concomitant]
     Dosage: UNK
  17. RENVELA [Concomitant]
     Dosage: UNK
  18. TRAZODONE [Concomitant]
     Dosage: UNK
  19. FLONASE [Concomitant]
     Dosage: UNK
  20. ERYTHROMYCIN [Concomitant]
     Dosage: UNK
  21. AZITHROMYCIN [Concomitant]
     Dosage: UNK

REACTIONS (2)
  - Eye oedema [Recovered/Resolved]
  - Dizziness [Unknown]
